FAERS Safety Report 8973415 (Version 1)
Quarter: 2012Q4

REPORT INFORMATION
  Report Type: 
  Country: US (occurrence: US)
  Receive Date: 20121218
  Receipt Date: 20121218
  Transmission Date: 20130627
  Serious: Yes (Other)
  Sender: FDA-Public Use
  Company Number: US-TEVA-375939USA

PATIENT
  Sex: Male

DRUGS (2)
  1. VORICONAZOLE [Suspect]
  2. BUDESONIDE [Interacting]

REACTIONS (2)
  - Cushing^s syndrome [Unknown]
  - Drug interaction [Unknown]
